FAERS Safety Report 14194536 (Version 1)
Quarter: 2017Q4

REPORT INFORMATION
  Report Type: Spontaneous
  Country: US (occurrence: US)
  Receive Date: 20171115
  Receipt Date: 20171115
  Transmission Date: 20180321
  Serious: Yes (Disabling)
  Sender: FDA-Public Use
  Company Number: None

PATIENT
  Age: 62 Year
  Sex: Female
  Weight: 54.45 kg

DRUGS (6)
  1. BIOTICS MG ZYME [Concomitant]
  2. COD LIVER OIL [Concomitant]
     Active Substance: COD LIVER OIL
  3. XIIDRA [Suspect]
     Active Substance: LIFITEGRAST
     Indication: DRY EYE
     Dosage: ?          QUANTITY:1 DROP(S);?
     Route: 047
     Dates: start: 20170408, end: 20170930
  4. PLUS HP [Concomitant]
  5. VALACYCLOVIR [Concomitant]
     Active Substance: VALACYCLOVIR HYDROCHLORIDE
  6. BIOTICS BETAINE [Concomitant]

REACTIONS (4)
  - Nausea [None]
  - Headache [None]
  - Ageusia [None]
  - Visual impairment [None]

NARRATIVE: CASE EVENT DATE: 20170815
